FAERS Safety Report 24149253 (Version 1)
Quarter: 2024Q3

REPORT INFORMATION
  Report Type: Spontaneous
  Country: DE (occurrence: DE)
  Receive Date: 20240729
  Receipt Date: 20240729
  Transmission Date: 20241017
  Serious: Yes (Other)
  Sender: JOHNSON AND JOHNSON
  Company Number: DE-PEI-202300047438

PATIENT
  Age: 68 Year
  Sex: Male

DRUGS (1)
  1. CARVYKTI [Suspect]
     Active Substance: CILTACABTAGENE AUTOLEUCEL
     Indication: Lymphocyte adoptive therapy
     Route: 065
     Dates: start: 20231102

REACTIONS (3)
  - Haemophagocytic lymphohistiocytosis [Not Recovered/Not Resolved]
  - Bronchopulmonary aspergillosis [Not Recovered/Not Resolved]
  - Multiple organ dysfunction syndrome [Not Recovered/Not Resolved]

NARRATIVE: CASE EVENT DATE: 20231111
